FAERS Safety Report 10143161 (Version 3)
Quarter: 2014Q2

REPORT INFORMATION
  Report Type: Spontaneous
  Country: US (occurrence: US)
  Receive Date: 20140430
  Receipt Date: 20140627
  Transmission Date: 20141212
  Serious: Yes (Other)
  Sender: FDA-Public Use
  Company Number: US-BAYER-2014-061182

PATIENT
  Age: 80 Year
  Sex: Male
  Weight: 80.73 kg

DRUGS (10)
  1. ALEVE CAPLET [Suspect]
     Indication: ANALGESIC THERAPY
     Dosage: 2 DF, QD
     Route: 048
     Dates: end: 20140417
  2. ALEVE CAPLET [Suspect]
     Indication: NECK PAIN
  3. VITAMIN D [Suspect]
  4. FLOMAX (TAMSULOSIN) [Concomitant]
  5. FINASTERIDE [Concomitant]
     Indication: PROSTATIC DISORDER
     Dosage: DOSE: 5 MG AFTER MEAL
  6. ZOCOR [Concomitant]
  7. LISINOPRIL [Concomitant]
     Indication: BLOOD PRESSURE ABNORMAL
     Dosage: DOSE: 40MG
  8. SIMVASTATIN [Concomitant]
     Indication: BLOOD CHOLESTEROL ABNORMAL
     Dosage: DOSE: 40MG AT NIGHT
  9. TAMSULOSIN [Concomitant]
     Dosage: DOSE: 0,4MG AFTER MEAL
  10. CIPROFLOXACIN [Concomitant]
     Indication: KIDNEY INFECTION
     Dosage: DOSE: 500MG/ FREQUENCY: 14 DAYS

REACTIONS (5)
  - Urinary bladder haemorrhage [Recovered/Resolved]
  - Blood urine present [Recovered/Resolved]
  - Incorrect drug administration duration [None]
  - White blood cell count increased [Recovered/Resolved]
  - Pruritus [Recovered/Resolved]
